FAERS Safety Report 7266844-6 (Version None)
Quarter: 2011Q1

REPORT INFORMATION
  Report Type: 
  Country: None (occurrence: None)
  Receive Date: 20110201
  Receipt Date: 20110127
  Transmission Date: 20110831
  Serious: Yes (Death, Hospitalization, Other)
  Sender: FDA-Public Use
  Company Number: US-ASTRAZENECA-2010SE48277

PATIENT
  Sex: Male

DRUGS (4)
  1. OTHER MEDS [Concomitant]
  2. SEROQUEL [Suspect]
     Route: 048
  3. RISPERIDONE [Suspect]
  4. SEROQUEL [Suspect]
     Indication: INSOMNIA
     Route: 048

REACTIONS (6)
  - ASPIRATION [None]
  - EXTRAPYRAMIDAL DISORDER [None]
  - DEATH [None]
  - CARDIAC DISORDER [None]
  - PNEUMONIA [None]
  - HYPOXIA [None]
